FAERS Safety Report 6370713-3 (Version None)
Quarter: 2009Q3

REPORT INFORMATION
  Report Type: 
  Country: None (occurrence: None)
  Receive Date: 20090923
  Receipt Date: 20070709
  Transmission Date: 20100115
  Serious: Yes (Other)
  Sender: FDA-Public Use
  Company Number: US-ASTRAZENECA-2006UW25987

PATIENT
  Age: 18630 Day
  Sex: Male
  Weight: 79.4 kg

DRUGS (16)
  1. SEROQUEL [Suspect]
     Indication: SCHIZOPHRENIA
     Dosage: 25 MG TO 400 MG
     Route: 048
     Dates: start: 19990712
  2. SEROQUEL [Suspect]
     Indication: BIPOLAR DISORDER
     Dosage: 25 MG TO 400 MG
     Route: 048
     Dates: start: 19990712
  3. SEROQUEL [Suspect]
     Indication: DEPRESSION
     Dosage: 25 MG TO 400 MG
     Route: 048
     Dates: start: 19990712
  4. SEROQUEL [Suspect]
     Indication: PSYCHOTIC DISORDER
     Dosage: 25 MG TO 400 MG
     Route: 048
     Dates: start: 19990712
  5. SEROQUEL [Suspect]
     Route: 048
     Dates: start: 20000101
  6. SEROQUEL [Suspect]
     Route: 048
     Dates: start: 20000101
  7. SEROQUEL [Suspect]
     Route: 048
     Dates: start: 20000101
  8. SEROQUEL [Suspect]
     Route: 048
     Dates: start: 20000101
  9. ABILIFY [Concomitant]
  10. HALDOL [Concomitant]
     Dosage: 2 MG TO 10 MG
     Dates: start: 20000420
  11. NAVANE [Concomitant]
     Indication: PSYCHOTIC DISORDER
     Dosage: 5 MG TO 10 MG
     Dates: start: 20000512
  12. RISPERDAL [Concomitant]
  13. THORAZINE [Concomitant]
  14. TRILAFON [Concomitant]
     Dates: end: 19990712
  15. LITHIUM CARBONATE [Concomitant]
     Indication: AFFECTIVE DISORDER
     Dates: start: 20000512
  16. COGENTIN [Concomitant]
     Dosage: 2 MG QHS, 1 MG BID
     Route: 048
     Dates: start: 19990712

REACTIONS (2)
  - DIABETES MELLITUS [None]
  - TARDIVE DYSKINESIA [None]
